FAERS Safety Report 17779733 (Version 1)
Quarter: 2020Q2

REPORT INFORMATION
  Report Type: Spontaneous
  Country: US (occurrence: US)
  Receive Date: 20200513
  Receipt Date: 20200513
  Transmission Date: 20200714
  Serious: Yes (Other)
  Sender: FDA-Public Use
  Company Number: US-AMNEAL PHARMACEUTICALS-2020-AMRX-00905

PATIENT
  Sex: Male

DRUGS (2)
  1. CLOBAZAM. [Suspect]
     Active Substance: CLOBAZAM
     Dosage: UNK, LOWERED DOSE
     Route: 065
     Dates: end: 20200318
  2. CLOBAZAM. [Suspect]
     Active Substance: CLOBAZAM
     Indication: SEIZURE
     Dosage: 2 TABS IN AM AND 2 TABS AT NIGHT
     Route: 065
     Dates: start: 2019

REACTIONS (2)
  - Condition aggravated [Unknown]
  - Intentional product use issue [Unknown]
